FAERS Safety Report 24095130 (Version 1)
Quarter: 2024Q3

REPORT INFORMATION
  Report Type: Report from Study
  Country: CA (occurrence: CA)
  Receive Date: 20240716
  Receipt Date: 20240716
  Transmission Date: 20241017
  Serious: Yes (Other)
  Sender: ABBVIE
  Company Number: CA-ABBVIE-5838502

PATIENT
  Age: 87 Year
  Sex: Male

DRUGS (1)
  1. OZURDEX [Suspect]
     Active Substance: DEXAMETHASONE
     Indication: Macular oedema
     Dosage: TIME INTERVAL: AS NECESSARY: FORM STRENGTH- DEX 0.7MG INS
     Route: 050
     Dates: start: 20221115, end: 20221115

REACTIONS (1)
  - Illness [Unknown]
